FAERS Safety Report 9412535 (Version 2)
Quarter: 2013Q3

REPORT INFORMATION
  Report Type: Report from Study
  Country: DE (occurrence: DE)
  Receive Date: 20130722
  Receipt Date: 20130729
  Transmission Date: 20140515
  Serious: Yes (Hospitalization)
  Sender: FDA-Public Use
  Company Number: DE-ROCHE-1250583

PATIENT
  Sex: Female

DRUGS (13)
  1. RITUXIMAB [Suspect]
     Indication: B-CELL LYMPHOMA
     Dosage: LAST DOSE PRIOR TO SAEON 01/JUL/2013
     Route: 042
     Dates: start: 20130622, end: 20130622
  2. CYCLOPHOSPHAMIDE [Suspect]
     Indication: B-CELL LYMPHOMA
     Dosage: LAST CYCLE OF CHOP STARTED PRIOR TO SAE ON 28/JUN/2013
     Route: 042
     Dates: start: 20130628, end: 20130628
  3. DOXORUBICINE [Suspect]
     Indication: B-CELL LYMPHOMA
     Dosage: LAST CYCLE OF CHOP STARTED PRIOR TO SAE ON 28/JUN/2013
     Route: 042
     Dates: start: 20130628, end: 20130628
  4. VINCRISTINE [Suspect]
     Indication: B-CELL LYMPHOMA
     Route: 042
     Dates: start: 20130628, end: 20130628
  5. PREDNISOLONE [Suspect]
     Indication: B-CELL LYMPHOMA
     Dosage: LAST CYCLE OF CHOP STARTED PRIOR TO SAE ON 28/JUN/2013
     Route: 042
     Dates: start: 20130620, end: 20130702
  6. PEGFILGRASTIM [Suspect]
     Indication: B-CELL LYMPHOMA
     Route: 058
     Dates: start: 20130701, end: 20130701
  7. SOTALOL [Concomitant]
     Indication: ARRHYTHMIA
     Route: 065
  8. PANTOPRAZOL [Concomitant]
     Indication: PROPHYLAXIS AGAINST GASTROINTESTINAL ULCER
     Route: 048
     Dates: start: 20130620, end: 20130702
  9. ACICLOVIR [Concomitant]
     Indication: INFECTION PROPHYLAXIS
     Route: 048
     Dates: start: 20130629
  10. SULFAMETHOXAZOLE/TRIMETHOPRIM [Concomitant]
     Indication: INFECTION PROPHYLAXIS
     Route: 048
     Dates: start: 20130628
  11. CIPROFLOXACIN [Concomitant]
     Indication: INFECTION PROPHYLAXIS
     Route: 048
  12. AMPHOTERICIN B [Concomitant]
     Indication: INFECTION PROPHYLAXIS
     Route: 048
  13. PANTOPRAZOL [Concomitant]
     Indication: PROPHYLAXIS AGAINST GASTROINTESTINAL ULCER
     Route: 048
     Dates: start: 20130620, end: 20130702

REACTIONS (1)
  - Subileus [Recovered/Resolved]
